FAERS Safety Report 8941535 (Version 1)
Quarter: 2012Q4

REPORT INFORMATION
  Report Type: 
  Country: CH (occurrence: CH)
  Receive Date: 20121203
  Receipt Date: 20121203
  Transmission Date: 20130627
  Serious: Yes (Hospitalization)
  Sender: FDA-Public Use
  Company Number: CH-ASTRAZENECA-2012SE89160

PATIENT
  Age: 55 Year
  Sex: Male

DRUGS (9)
  1. SEROQUEL [Suspect]
     Indication: SCHIZOPHRENIA, PARANOID TYPE
     Route: 048
     Dates: start: 200801, end: 2009
  2. SEROQUEL [Interacting]
     Indication: SCHIZOPHRENIA, PARANOID TYPE
     Dosage: quadrupled dose
     Route: 048
  3. KALETRA [Interacting]
     Indication: HIV INFECTION
     Route: 048
     Dates: start: 200408
  4. VIDEX EC [Suspect]
     Indication: HIV INFECTION
     Route: 048
     Dates: start: 200408
  5. VIREAD [Suspect]
     Indication: HIV INFECTION
     Route: 048
     Dates: start: 200408
  6. NEXIUM [Concomitant]
     Route: 048
     Dates: start: 2006
  7. SOLIAN [Concomitant]
     Indication: SCHIZOPHRENIA, PARANOID TYPE
     Route: 048
     Dates: start: 2006
  8. FERRO SANOL [Concomitant]
     Route: 048
     Dates: start: 2008
  9. SUPRADYN [Concomitant]
     Route: 048
     Dates: start: 2008

REACTIONS (6)
  - Drug interaction [Unknown]
  - Rhabdomyolysis [Recovered/Resolved]
  - Gait disturbance [Recovering/Resolving]
  - Muscular weakness [Recovered/Resolved]
  - Blood creatine phosphokinase increased [Recovering/Resolving]
  - Asthenia [Recovered/Resolved]
